FAERS Safety Report 9604359 (Version 2)
Quarter: 2013Q4

REPORT INFORMATION
  Report Type: Report from Study
  Country: US (occurrence: US)
  Receive Date: 20131008
  Receipt Date: 20131204
  Transmission Date: 20140711
  Serious: Yes (Other)
  Sender: FDA-Public Use
  Company Number: PHEH2013US020782

PATIENT
  Sex: Female
  Weight: 92.7 kg

DRUGS (13)
  1. GILENYA [Suspect]
     Indication: MULTIPLE SCLEROSIS
     Dosage: 0.5 MG, DAILY
     Route: 048
     Dates: start: 20111206
  2. MACROBID [Concomitant]
     Dosage: 100 MG, QD PRN
     Dates: start: 20130111
  3. WELLBUTRIN [Concomitant]
     Dosage: 150 MG, QD
     Dates: start: 20130111
  4. NORTRIPTYLINE [Concomitant]
     Dosage: 25 MG AT BED TIME
     Dates: start: 20130111
  5. NADOLOL [Concomitant]
     Dosage: 80 MG, QD
     Dates: start: 20131001
  6. CLONAZEPAM [Concomitant]
  7. FIORICET [Concomitant]
     Dosage: 325 MG, 1-2 TAB EVERY 4 HOURS.
     Dates: start: 20131007
  8. FLECTOR [Concomitant]
     Dosage: USE FOR 12 HOURS
     Dates: start: 20131004
  9. VICODIN [Concomitant]
     Dosage: 5/300 MG 1 TAB EVERY 4 HOURS PRN
     Dates: start: 20131001
  10. AMBIEN [Concomitant]
     Dosage: 10 MG, QD PRN
     Dates: start: 20130916
  11. KLONOPIN [Concomitant]
     Dosage: 0.5 MG, QD AT BED TIME
  12. PROVIGIL//MODAFINIL [Concomitant]
     Dosage: 200 MG, QD,PRN
  13. CLARITIN [Concomitant]
     Dosage: 10 MG, QD, BED TIME

REACTIONS (9)
  - Eye haemorrhage [Recovering/Resolving]
  - Dystonia [Recovering/Resolving]
  - Visual field defect [Recovering/Resolving]
  - Retinal degeneration [Recovering/Resolving]
  - Vision blurred [Recovering/Resolving]
  - Diplopia [Recovering/Resolving]
  - Nystagmus [Recovered/Resolved]
  - Dizziness [Recovering/Resolving]
  - Eye pain [Recovering/Resolving]
